FAERS Safety Report 11878997 (Version 1)
Quarter: 2015Q4

REPORT INFORMATION
  Report Type: Spontaneous
  Country: US (occurrence: US)
  Receive Date: 20151230
  Receipt Date: 20151230
  Transmission Date: 20160305
  Serious: Yes (Other)
  Sender: FDA-Public Use
  Company Number: US-JNJFOC-20151218737

PATIENT
  Age: 59 Year
  Sex: Female

DRUGS (13)
  1. CLARITIN [Concomitant]
     Active Substance: LORATADINE
     Route: 065
  2. XANAX [Concomitant]
     Active Substance: ALPRAZOLAM
     Route: 065
  3. ZANTAC [Concomitant]
     Active Substance: RANITIDINE HYDROCHLORIDE
     Route: 065
  4. STELARA [Suspect]
     Active Substance: USTEKINUMAB
     Indication: PSORIASIS
     Route: 058
     Dates: end: 20151214
  5. HIBICLENS [Concomitant]
     Active Substance: CHLORHEXIDINE GLUCONATE
     Route: 065
  6. QUINAPRIL [Concomitant]
     Active Substance: QUINAPRIL\QUINAPRIL HYDROCHLORIDE
     Route: 065
  7. HALOG [Concomitant]
     Active Substance: HALCINONIDE
     Route: 065
  8. SYNTHROID [Concomitant]
     Active Substance: LEVOTHYROXINE SODIUM
     Route: 065
  9. TRIAMCINOLONE ACETONIDE. [Concomitant]
     Active Substance: TRIAMCINOLONE ACETONIDE
     Route: 065
  10. STELARA [Suspect]
     Active Substance: USTEKINUMAB
     Indication: PSORIASIS
     Route: 058
  11. PROZAC [Concomitant]
     Active Substance: FLUOXETINE HYDROCHLORIDE
     Route: 065
  12. SINGULAIR [Concomitant]
     Active Substance: MONTELUKAST SODIUM
     Route: 065
  13. ZYRTEC [Concomitant]
     Active Substance: CETIRIZINE HYDROCHLORIDE
     Route: 065

REACTIONS (6)
  - Wound infection [Unknown]
  - Skin exfoliation [Unknown]
  - Arthritis [Unknown]
  - Haemorrhage [Unknown]
  - Depression [Unknown]
  - Treatment failure [Unknown]
